FAERS Safety Report 7392969-0 (Version None)
Quarter: 2011Q2

REPORT INFORMATION
  Report Type: 
  Country: None (occurrence: None)
  Receive Date: 20110404
  Receipt Date: 20110330
  Transmission Date: 20111010
  Serious: Yes (Life-Threatening)
  Sender: FDA-Public Use
  Company Number: JP-ASTRAZENECA-2011SE09237

PATIENT
  Age: 66 Year
  Sex: Female
  Weight: 62 kg

DRUGS (13)
  1. SEISHOKU [Concomitant]
     Route: 041
     Dates: start: 20081017, end: 20090130
  2. ENDOXAN [Suspect]
     Indication: BREAST CANCER
     Route: 041
     Dates: start: 20081017, end: 20090130
  3. ZANTAC [Concomitant]
     Indication: BREAST CANCER
     Route: 041
     Dates: start: 20081017, end: 20090130
  4. ARIMIDEX [Suspect]
     Indication: BREAST CANCER
     Route: 048
     Dates: start: 20090224, end: 20110218
  5. SEISHOKU [Concomitant]
     Route: 041
     Dates: start: 20081017, end: 20090130
  6. NAUZELIN [Concomitant]
     Indication: PROPHYLAXIS OF NAUSEA AND VOMITING
     Route: 054
     Dates: start: 20081017, end: 20090130
  7. FARMORUBICIN [Suspect]
     Indication: BREAST CANCER
     Route: 041
     Dates: start: 20081017, end: 20090130
  8. SHIOSOL [Concomitant]
     Indication: RHEUMATOID ARTHRITIS
     Dosage: DOSE UNKNOWN
     Route: 065
     Dates: start: 20010801, end: 20100828
  9. DECADRON [Concomitant]
     Indication: BREAST CANCER
     Route: 041
     Dates: start: 20081017, end: 20090130
  10. PURSENNID [Concomitant]
     Indication: CONSTIPATION PROPHYLAXIS
     Route: 048
     Dates: start: 20081017, end: 20090130
  11. FLUOROURACIL [Suspect]
     Indication: BREAST CANCER
     Route: 041
     Dates: start: 20081017, end: 20090130
  12. SEISHOKU [Concomitant]
     Indication: BREAST CANCER
     Route: 041
     Dates: start: 20081017, end: 20090130
  13. KYTRIL [Concomitant]
     Route: 041
     Dates: start: 20081017, end: 20090130

REACTIONS (1)
  - ACUTE MYELOID LEUKAEMIA [None]
